FAERS Safety Report 8508970-7 (Version None)
Quarter: 2012Q3

REPORT INFORMATION
  Report Type: 
  Country: None (occurrence: None)
  Receive Date: 20120713
  Receipt Date: 20120711
  Transmission Date: 20120928
  Serious: Yes (Hospitalization)
  Sender: FDA-Public Use
  Company Number: GB-B.I. PHARMACEUTICALS,INC./RIDGEFIELD-2012-UK-00698UK

PATIENT
  Sex: Male
  Weight: 103.7 kg

DRUGS (24)
  1. FUROSEMIDE [Concomitant]
     Indication: JOINT SWELLING
     Dosage: 40 MG
     Route: 048
     Dates: end: 20120606
  2. CAPSAICIN [Concomitant]
     Indication: DIABETIC NEUROPATHY
     Dosage: 0.075% TDS
     Route: 061
  3. GLYCLAZIDE [Concomitant]
     Indication: DIABETES MELLITUS
     Dosage: 320 MG
     Route: 048
  4. AMOXICILLIN [Concomitant]
     Indication: CHRONIC OBSTRUCTIVE PULMONARY DISEASE
     Dosage: 1500 MG
     Route: 048
     Dates: start: 20120412, end: 20120419
  5. SALMETEROL [Suspect]
     Indication: CHRONIC OBSTRUCTIVE PULMONARY DISEASE
     Dosage: 100 MCG
     Route: 055
     Dates: start: 20111109
  6. FLUTICASONE PROPIONATE/SALMETEROL [Concomitant]
     Indication: CHRONIC OBSTRUCTIVE PULMONARY DISEASE
     Dosage: 1000 MCG
     Route: 055
     Dates: end: 20111108
  7. SILDENAFIL [Concomitant]
     Indication: ERECTILE DYSFUNCTION
     Dosage: 10 MG
     Route: 048
  8. NEXIUM [Concomitant]
     Indication: GASTRITIS
     Dosage: 20 MG
     Route: 048
     Dates: start: 20120210, end: 20120606
  9. CLARITHROMYCIN [Concomitant]
     Indication: CHRONIC OBSTRUCTIVE PULMONARY DISEASE
     Dosage: 1 G
     Route: 048
     Dates: start: 20120412, end: 20120419
  10. ALBUTEROL SULATE [Concomitant]
     Indication: CHRONIC OBSTRUCTIVE PULMONARY DISEASE
     Dosage: 200 MCG
     Route: 055
     Dates: start: 20111109, end: 20120523
  11. AMYTRIPTYLLINE [Concomitant]
     Indication: PAIN
     Dosage: 10 MG
     Route: 048
     Dates: start: 20110913, end: 20110913
  12. VENTOLIN [Concomitant]
     Indication: CHRONIC OBSTRUCTIVE PULMONARY DISEASE
     Dosage: 200 MCG
     Route: 055
     Dates: end: 20111107
  13. CARBOCISTEINE [Concomitant]
     Indication: CHRONIC OBSTRUCTIVE PULMONARY DISEASE
     Dosage: 1500 MG
     Route: 048
     Dates: end: 20110913
  14. LANSOPRAZOLE [Concomitant]
     Indication: GASTRITIS
     Dosage: 30 MG
     Route: 048
     Dates: start: 20120606
  15. CALCICHEW D3 [Concomitant]
     Indication: BONE DENSITY ABNORMAL
     Dosage: 2.5 G
     Route: 048
     Dates: end: 20120606
  16. TIOTROPIUM BROMIDE [Suspect]
     Indication: CHRONIC OBSTRUCTIVE PULMONARY DISEASE
     Dosage: 18 MCG
     Route: 055
     Dates: start: 20111109
  17. SPIRIVA [Concomitant]
     Indication: CHRONIC OBSTRUCTIVE PULMONARY DISEASE
     Dosage: 18 MCG
     Route: 055
     Dates: end: 20111107
  18. METFORMIN HYDROCHLORIDE [Concomitant]
     Indication: DIABETES MELLITUS
     Dosage: 1500 MG
     Route: 048
  19. QUININE SULFATE [Concomitant]
     Indication: MUSCLE SPASMS
     Dosage: 300 MG
     Route: 048
     Dates: end: 20120606
  20. METFORMIN MR [Concomitant]
     Indication: DIABETES MELLITUS
     Dosage: 500 MG
     Route: 048
     Dates: start: 20110913
  21. PREDNISOLONE [Concomitant]
     Indication: CHRONIC OBSTRUCTIVE PULMONARY DISEASE
     Dosage: 1 MG
     Route: 048
  22. ACETAMINOPHEN [Concomitant]
     Indication: TEMPORAL ARTERITIS
     Dosage: 1 G
     Route: 048
  23. SITAGLIPTIN [Concomitant]
     Indication: DIABETES MELLITUS
     Dosage: 100 MG
     Route: 048
     Dates: start: 20120416
  24. IBUPROFEN [Concomitant]
     Indication: TEMPORAL ARTERITIS
     Dosage: 1200 MG
     Route: 048
     Dates: start: 20120409, end: 20120421

REACTIONS (3)
  - BRONCHITIS CHEMICAL [None]
  - CHRONIC OBSTRUCTIVE PULMONARY DISEASE [None]
  - LACERATION [None]
